FAERS Safety Report 12289492 (Version 13)
Quarter: 2017Q3

REPORT INFORMATION
  Report Type: Report from Study
  Country: CZ (occurrence: CZ)
  Receive Date: 20160421
  Receipt Date: 20170711
  Transmission Date: 20171127
  Serious: Yes (Hospitalization)
  Sender: FDA-Public Use
  Company Number: CZ-EISAI MEDICAL RESEARCH-EC-2016-016072

PATIENT
  Age: 61 Year
  Sex: Female
  Weight: 82 kg

DRUGS (24)
  1. FYCOMPA [Suspect]
     Active Substance: PERAMPANEL
     Route: 048
     Dates: start: 20160405, end: 20160411
  2. CITALOPRAM [Concomitant]
     Active Substance: CITALOPRAM HYDROBROMIDE
  3. RIVOTRIL [Concomitant]
     Active Substance: CLONAZEPAM
  4. NORALGIN [Concomitant]
  5. NEUROL (ALPRAZOLAM) [Concomitant]
     Active Substance: ALPRAZOLAM
  6. ISOLYTE [Concomitant]
  7. KCL [Concomitant]
     Active Substance: POTASSIUM CHLORIDE
  8. FYCOMPA [Suspect]
     Active Substance: PERAMPANEL
     Route: 048
     Dates: start: 20151204, end: 20160126
  9. FYCOMPA [Suspect]
     Active Substance: PERAMPANEL
     Route: 048
     Dates: start: 20160127, end: 20160222
  10. ZALDIAR [Concomitant]
     Active Substance: ACETAMINOPHEN\TRAMADOL HYDROCHLORIDE
  11. CLONAZEPAM. [Concomitant]
     Active Substance: CLONAZEPAM
  12. LEVETIRACETAM. [Concomitant]
     Active Substance: LEVETIRACETAM
  13. LUSOPRESS [Concomitant]
     Active Substance: NITRENDIPINE
  14. MGSO4 [Concomitant]
     Active Substance: MAGNESIUM SULFATE
  15. FYCOMPA [Suspect]
     Active Substance: PERAMPANEL
     Route: 048
     Dates: start: 20160329, end: 20160330
  16. FYCOMPA [Suspect]
     Active Substance: PERAMPANEL
     Route: 048
     Dates: start: 20160331, end: 20160404
  17. FYCOMPA [Suspect]
     Active Substance: PERAMPANEL
     Indication: EPILEPSY
     Route: 048
     Dates: start: 20151119, end: 20151203
  18. WARFARIN [Concomitant]
     Active Substance: WARFARIN
  19. PRESTRIUM NEO [Concomitant]
  20. KARBAMAZEPIN [Concomitant]
     Active Substance: CARBAMAZEPINE
  21. VASOCARDIN [Concomitant]
     Active Substance: METOPROLOL
  22. FYCOMPA [Suspect]
     Active Substance: PERAMPANEL
     Route: 048
     Dates: start: 20160223, end: 20160328
  23. ATORIS [Concomitant]
     Active Substance: ATORVASTATIN CALCIUM
  24. APAURIN [Concomitant]
     Active Substance: DIAZEPAM

REACTIONS (8)
  - Fall [Recovered/Resolved]
  - Epilepsy [Recovered/Resolved]
  - Seizure cluster [Recovered/Resolved]
  - Psychotic disorder [Recovering/Resolving]
  - Spinal compression fracture [Recovered/Resolved with Sequelae]
  - Vertigo [Recovered/Resolved]
  - Fatigue [Recovered/Resolved]
  - Atrial flutter [Recovered/Resolved]

NARRATIVE: CASE EVENT DATE: 20160224
